FAERS Safety Report 12182991 (Version 2)
Quarter: 2016Q2

REPORT INFORMATION
  Report Type: Spontaneous
  Country: US (occurrence: US)
  Receive Date: 20160316
  Receipt Date: 20160607
  Transmission Date: 20160815
  Serious: Yes (Disabling)
  Sender: FDA-Public Use
  Company Number: PHEH2016US006116

PATIENT
  Age: 49 Year
  Sex: Male
  Weight: 86.17 kg

DRUGS (1)
  1. COSENTYX [Suspect]
     Active Substance: SECUKINUMAB
     Indication: PSORIASIS
     Dosage: 300 MG, LOADING DOSE
     Route: 058
     Dates: start: 20160121, end: 20160211

REACTIONS (5)
  - Oral fungal infection [Recovered/Resolved]
  - Anal fungal infection [Recovered/Resolved]
  - Rash [Unknown]
  - Upper-airway cough syndrome [Recovered/Resolved]
  - Pharyngitis [Unknown]

NARRATIVE: CASE EVENT DATE: 20160201
